FAERS Safety Report 9133861 (Version 1)
Quarter: 2013Q1

REPORT INFORMATION
  Report Type: Spontaneous
  Country: US (occurrence: US)
  Receive Date: 20130303
  Receipt Date: 20130303
  Transmission Date: 20140127
  Serious: Yes (Other)
  Sender: FDA-Public Use
  Company Number: US-009507513-1302USA012556

PATIENT
  Sex: Female
  Weight: 83.9 kg

DRUGS (3)
  1. PEGINTRON [Suspect]
     Route: 048
  2. RIBASPHERE [Suspect]
  3. RIBAPAK [Suspect]
     Dosage: 5 UNK, UNK
     Route: 048

REACTIONS (25)
  - Cerebrovascular accident [Unknown]
  - Hypoacusis [Unknown]
  - Platelet count decreased [Unknown]
  - Fall [Unknown]
  - Movement disorder [Unknown]
  - Speech disorder [Unknown]
  - Abdominal distension [Unknown]
  - Tremor [Unknown]
  - Insomnia [Unknown]
  - Visual impairment [Unknown]
  - Enuresis [Unknown]
  - Constipation [Unknown]
  - Cough [Unknown]
  - Decreased appetite [Unknown]
  - Cognitive disorder [Unknown]
  - Drug ineffective [Unknown]
  - Nausea [Unknown]
  - Vomiting [Unknown]
  - Lethargy [Unknown]
  - Liver disorder [Unknown]
  - Dyspnoea [Unknown]
  - General physical health deterioration [Unknown]
  - Emotional disorder [Unknown]
  - Dysphagia [Unknown]
  - Headache [Unknown]
